FAERS Safety Report 4793800-X (Version None)
Quarter: 2005Q4

REPORT INFORMATION
  Report Type: 
  Country: None (occurrence: None)
  Receive Date: 20051011
  Receipt Date: 20050926
  Transmission Date: 20060501
  Serious: Yes (Other)
  Sender: FDA-Public Use
  Company Number: GB-GILEAD-2005-0008734

PATIENT
  Age: 42 Year
  Sex: Male

DRUGS (10)
  1. VIREAD [Suspect]
     Dates: start: 20031201
  2. SUSTIVA [Suspect]
     Route: 048
     Dates: start: 19980801
  3. VIDEX [Suspect]
     Route: 048
     Dates: start: 19960101, end: 19970301
  4. ZERIT [Suspect]
     Dates: start: 19970401, end: 20020101
  5. LAMIVUDINE [Suspect]
     Dates: start: 19970301, end: 19980101
  6. RITONAVIR [Suspect]
     Dates: start: 19970301, end: 19970101
  7. INDINAVIR [Suspect]
     Dates: start: 19970101, end: 19980101
  8. ABACAVIR [Suspect]
     Dates: start: 19980801
  9. ZIDOVUDINE [Concomitant]
     Dates: start: 19930101
  10. ZIDOVUDINE [Concomitant]
     Dates: start: 20020101, end: 20020101

REACTIONS (6)
  - ACQUIRED IMMUNODEFICIENCY SYNDROME [None]
  - ADRENAL INSUFFICIENCY [None]
  - CYTOMEGALOVIRUS CHORIORETINITIS [None]
  - HYPOGONADISM [None]
  - LIPOATROPHY [None]
  - LIPODYSTROPHY ACQUIRED [None]
